FAERS Safety Report 7260022-2 (Version None)
Quarter: 2011Q1

REPORT INFORMATION
  Report Type: 
  Country: None (occurrence: None)
  Receive Date: 20110130
  Receipt Date: 20101018
  Transmission Date: 20110831
  Serious: No
  Sender: FDA-Public Use
  Company Number: US-ABBOTT-10P-163-0679201-00

PATIENT
  Sex: Male
  Weight: 127.12 kg

DRUGS (3)
  1. INFLUENZA VACCINE [Suspect]
     Indication: PRODUCT USED FOR UNKNOWN INDICATION
     Route: 050
     Dates: start: 20101001, end: 20101001
  2. HUMIRA [Suspect]
     Indication: RHEUMATOID ARTHRITIS
     Route: 058
     Dates: start: 20101024
  3. HUMIRA [Suspect]
     Indication: PSORIATIC ARTHROPATHY
     Route: 058
     Dates: start: 20100801, end: 20101017

REACTIONS (10)
  - INJECTION SITE PAIN [None]
  - CHEST DISCOMFORT [None]
  - PAIN IN EXTREMITY [None]
  - RHINORRHOEA [None]
  - DRUG EFFECT DECREASED [None]
  - SENSATION OF HEAVINESS [None]
  - PAIN [None]
  - NASOPHARYNGITIS [None]
  - MOBILITY DECREASED [None]
  - MALAISE [None]
